FAERS Safety Report 20078138 (Version 1)
Quarter: 2021Q4

REPORT INFORMATION
  Report Type: Spontaneous
  Country: GB (occurrence: GB)
  Receive Date: 20211117
  Receipt Date: 20211117
  Transmission Date: 20220303
  Serious: Yes (Other)
  Sender: FDA-Public Use
  Company Number: GB-MHRA-EMIS-4814-437e20c3-016a-4cfd-8192-a82a4b2a9d74

PATIENT
  Age: 55 Year
  Sex: Female
  Weight: 78 kg

DRUGS (4)
  1. FLUOXETINE [Suspect]
     Active Substance: FLUOXETINE HYDROCHLORIDE
     Indication: Mixed anxiety and depressive disorder
     Dosage: 20 MILLIGRAM, ONCE A DAY
     Route: 065
     Dates: start: 20211007, end: 202110
  2. ESTRADIOL [Concomitant]
     Active Substance: ESTRADIOL
     Indication: Hormone replacement therapy
     Dosage: 1 DOSAGE FORM (TWO TIMES A WEEK)
     Route: 065
     Dates: start: 20211007
  3. OTOMIZE [Concomitant]
     Indication: Ear pain
     Dosage: 5 MILLILITER, 3 TIMES A DAY
     Route: 001
     Dates: start: 20210915, end: 20211028
  4. PROGESTERONE [Concomitant]
     Active Substance: PROGESTERONE
     Indication: Mixed anxiety and depressive disorder
     Dosage: 100 MILLIGRAM, ONCE A DAY(ONE EACH DAY (CONTINUOUSLY) WHILST USING TRANSDERMAL)
     Route: 065
     Dates: start: 20211007

REACTIONS (2)
  - Contusion [Recovered/Resolved]
  - Haematoma [Recovered/Resolved]

NARRATIVE: CASE EVENT DATE: 20211001
